FAERS Safety Report 24174604 (Version 2)
Quarter: 2025Q1

REPORT INFORMATION
  Report Type: Spontaneous
  Country: JP (occurrence: JP)
  Receive Date: 20240805
  Receipt Date: 20250310
  Transmission Date: 20250409
  Serious: Yes (Hospitalization, Other)
  Sender: PFIZER
  Company Number: JP-PFIZER INC-PV202300164465

PATIENT
  Age: 91 Year
  Sex: Female

DRUGS (16)
  1. RITUXIMAB [Suspect]
     Active Substance: RITUXIMAB
     Indication: Anti-neutrophil cytoplasmic antibody positive vasculitis
  2. RITUXIMAB [Suspect]
     Active Substance: RITUXIMAB
  3. PREDNISOLONE [Concomitant]
     Active Substance: PREDNISOLONE
     Indication: Anti-neutrophil cytoplasmic antibody positive vasculitis
     Dosage: 30 MG, DAILY
     Route: 048
  4. FUROSEMIDE [Concomitant]
     Active Substance: FUROSEMIDE
  5. TRICHLORMETHIAZIDE [Concomitant]
     Active Substance: TRICHLORMETHIAZIDE
  6. TOLVAPTAN [Concomitant]
     Active Substance: TOLVAPTAN
  7. ROXADUSTAT [Concomitant]
     Active Substance: ROXADUSTAT
  8. LANSOPRAZOLE [Concomitant]
     Active Substance: LANSOPRAZOLE
  9. LINAGLIPTIN [Concomitant]
     Active Substance: LINAGLIPTIN
  10. REPAGLINIDE [Concomitant]
     Active Substance: REPAGLINIDE
  11. FEBUXOSTAT [Concomitant]
     Active Substance: FEBUXOSTAT
  12. SULFAMETHOXAZOLE\TRIMETHOPRIM [Concomitant]
     Active Substance: SULFAMETHOXAZOLE\TRIMETHOPRIM
  13. ALENDRONIC ACID [Concomitant]
     Active Substance: ALENDRONIC ACID
  14. SODIUM ZIRCONIUM CYCLOSILICATE [Concomitant]
     Active Substance: SODIUM ZIRCONIUM CYCLOSILICATE
  15. CLONAZEPAM [Concomitant]
     Active Substance: CLONAZEPAM
  16. TRAZODONE HYDROCHLORIDE [Concomitant]
     Active Substance: TRAZODONE HYDROCHLORIDE

REACTIONS (2)
  - Neutropenia [Recovering/Resolving]
  - Febrile neutropenia [Recovering/Resolving]
